FAERS Safety Report 5638130-9 (Version None)
Quarter: 2008Q1

REPORT INFORMATION
  Report Type: 
  Country: None (occurrence: None)
  Receive Date: 20080221
  Receipt Date: 20080211
  Transmission Date: 20080703
  Serious: Yes (Hospitalization, Other)
  Sender: FDA-Public Use
  Company Number: 2008S1002499

PATIENT
  Age: 37 Year
  Sex: Female

DRUGS (1)
  1. ALBUTEROL SULFALE INHALATION SOLUTION [Suspect]
     Dosage: 3 ML; X1; INTRAVENQUS
     Route: 042
     Dates: start: 20080210, end: 20080210

REACTIONS (4)
  - INCORRECT ROUTE OF DRUG ADMINISTRATION [None]
  - INJECTION SITE IRRITATION [None]
  - TACHYCARDIA [None]
  - WRONG DRUG ADMINISTERED [None]
